FAERS Safety Report 7497176-9 (Version None)
Quarter: 2011Q2

REPORT INFORMATION
  Report Type: 
  Country: None (occurrence: None)
  Receive Date: 20110523
  Receipt Date: 20110509
  Transmission Date: 20111010
  Serious: Yes (Other)
  Sender: FDA-Public Use
  Company Number: US-AMGEN-USASP2011024205

PATIENT
  Age: 55 Year
  Sex: Female

DRUGS (13)
  1. MS CONTIN [Concomitant]
  2. ZOCOR [Concomitant]
  3. XGEVA [Suspect]
     Indication: METASTASES TO BONE
     Dates: start: 20110404
  4. ZOFRAN [Concomitant]
  5. TAPAZOLE [Concomitant]
  6. PERCOCET [Concomitant]
  7. IBUPROFEN [Concomitant]
  8. MARINOL                            /00003301/ [Concomitant]
  9. AMBIEN [Concomitant]
  10. ATIVAN [Concomitant]
  11. CELEXA [Concomitant]
  12. ATENOLOL [Concomitant]
  13. WELLBUTRIN XL [Concomitant]

REACTIONS (3)
  - REFRACTORINESS TO PLATELET TRANSFUSION [None]
  - PLATELET COUNT ABNORMAL [None]
  - ANTIBODY TEST POSITIVE [None]
